FAERS Safety Report 24257939 (Version 1)
Quarter: 2024Q3

REPORT INFORMATION
  Report Type: Other
  Country: US (occurrence: US)
  Receive Date: 20240828
  Receipt Date: 20240828
  Transmission Date: 20241017
  Serious: Yes (Other)
  Sender: B BRAUN
  Company Number: US-B.Braun Medical Inc.-2160927

PATIENT
  Age: 76 Year
  Sex: Female

DRUGS (16)
  1. CEFTRIAXONE SODIUM [Suspect]
     Active Substance: CEFTRIAXONE SODIUM
     Indication: Erythema
  2. CEFTRIAXONE SODIUM [Suspect]
     Active Substance: CEFTRIAXONE SODIUM
     Indication: Crying
  3. METRONIDAZOLE [Suspect]
     Active Substance: METRONIDAZOLE
  4. Maintenance fluids [Concomitant]
  5. DRONABINOL [Concomitant]
     Active Substance: DRONABINOL
  6. GABAPENTIN [Concomitant]
     Active Substance: GABAPENTIN
  7. DEXTROSE [Concomitant]
     Active Substance: DEXTROSE\DEXTROSE MONOHYDRATE
  8. CALCITONIN [Concomitant]
     Active Substance: CALCITONIN
  9. PAMIDRONATE [Concomitant]
     Active Substance: PAMIDRONATE DISODIUM
  10. FUROSEMIDE [Concomitant]
     Active Substance: FUROSEMIDE
  11. FLUCONAZOLE [Concomitant]
     Active Substance: FLUCONAZOLE
  12. DOXYCYCLINE [Concomitant]
     Active Substance: DOXYCYCLINE\DOXYCYCLINE HYCLATE
  13. PHYTONADIONE [Concomitant]
     Active Substance: PHYTONADIONE
  14. PHENYLEPHRINE [Concomitant]
     Active Substance: PHENYLEPHRINE HYDROCHLORIDE
  15. PIPERACILLIN SODIUM\TAZOBACTAM SODIUM [Concomitant]
     Active Substance: PIPERACILLIN SODIUM\TAZOBACTAM SODIUM
  16. VANCOMYCIN [Concomitant]
     Active Substance: VANCOMYCIN

REACTIONS (1)
  - Tubulointerstitial nephritis [Unknown]
